FAERS Safety Report 6176380-6 (Version None)
Quarter: 2009Q2

REPORT INFORMATION
  Report Type: 
  Country: None (occurrence: None)
  Receive Date: 20090501
  Receipt Date: 20090422
  Transmission Date: 20091009
  Serious: Yes (Other)
  Sender: FDA-Public Use
  Company Number: ES-JNJFOC-20090403713

PATIENT
  Age: 13 Year

DRUGS (5)
  1. INFLIXIMAB [Suspect]
     Dosage: THIRD DOSE
     Route: 042
  2. INFLIXIMAB [Suspect]
     Route: 042
  3. INFLIXIMAB [Suspect]
     Indication: CROHN'S DISEASE
     Route: 042
  4. ADALIMUMAB [Suspect]
     Dosage: 7TH DOSE
  5. ADALIMUMAB [Suspect]
     Indication: CROHN'S DISEASE

REACTIONS (1)
  - PSORIASIS [None]
